FAERS Safety Report 5888897-X (Version None)
Quarter: 2008Q3

REPORT INFORMATION
  Report Type: 
  Country: None (occurrence: None)
  Receive Date: 20080919
  Receipt Date: 20080911
  Transmission Date: 20090109
  Serious: Yes (Other)
  Sender: FDA-Public Use
  Company Number: PHHY2008GB21469

PATIENT

DRUGS (1)
  1. RITALIN [Suspect]
     Route: 048

REACTIONS (1)
  - DRUG WITHDRAWAL HEADACHE [None]
